FAERS Safety Report 4284564-7 (Version None)
Quarter: 2004Q1

REPORT INFORMATION
  Report Type: 
  Country: None (occurrence: None)
  Receive Date: 20040129
  Receipt Date: 20040115
  Transmission Date: 20041129
  Serious: Yes (Hospitalization)
  Sender: FDA-Public Use
  Company Number: 200410178FR

PATIENT
  Age: 69 Year
  Sex: Male

DRUGS (6)
  1. DI-ANTALVIC TABLETS [Suspect]
     Dosage: 3 G/DAY PO
     Route: 048
     Dates: start: 20021206, end: 20030130
  2. CEFOTAXIME SODIUM (CLAFORAN) TABLETS [Suspect]
     Dosage: 3 G/DAY PO
     Route: 048
     Dates: start: 20030119, end: 20030123
  3. LOMUSTINE (BELUSTINE) [Suspect]
     Dosage: 200 MG/DAY
     Dates: start: 20021227, end: 20021227
  4. DEPAKENE [Suspect]
     Dosage: 1.5 G/DAY PO
     Route: 048
     Dates: start: 20021206, end: 20030130
  5. PROCARBAZINE HYDROCHLORIDE (NATULAN) [Suspect]
     Dosage: 100 MG/DAY
     Dates: start: 20030103, end: 20030116
  6. VINCRISTINE SULFATE (ONCOVIN) [Suspect]
     Dosage: 2 G/DAY
     Dates: start: 20030103, end: 20030124

REACTIONS (1)
  - TOXIC EPIDERMAL NECROLYSIS [None]
